FAERS Safety Report 7493392-0 (Version None)
Quarter: 2011Q2

REPORT INFORMATION
  Report Type: 
  Country: None (occurrence: None)
  Receive Date: 20110512
  Receipt Date: 20110506
  Transmission Date: 20111010
  Serious: Yes (Hospitalization)
  Sender: FDA-Public Use
  Company Number: 2011SP016907

PATIENT
  Age: 76 Year
  Sex: Male

DRUGS (11)
  1. HALCION [Concomitant]
  2. TICLOPIDINE HCL [Concomitant]
  3. ISOSORBIDE DINITRATE [Concomitant]
  4. DOGMATYL [Concomitant]
  5. AMLODIPINE [Concomitant]
  6. DIART [Concomitant]
  7. REMERON [Suspect]
     Indication: PRODUCT USED FOR UNKNOWN INDICATION
     Dosage: 45 MG, QD, PO
     Route: 048
     Dates: start: 20110201, end: 20110408
  8. WARFARIN (WARFARIN POTASSIUM) [Concomitant]
  9. METFORMIN HCL [Concomitant]
  10. CLONAZEPAM [Concomitant]
  11. ACTOS [Concomitant]

REACTIONS (5)
  - MOVEMENT DISORDER [None]
  - BLOOD CREATINE PHOSPHOKINASE INCREASED [None]
  - ARTHRALGIA [None]
  - RHABDOMYOLYSIS [None]
  - PYREXIA [None]
